FAERS Safety Report 5830369-2 (Version None)
Quarter: 2008Q3

REPORT INFORMATION
  Report Type: 
  Country: None (occurrence: None)
  Receive Date: 20080801
  Receipt Date: 20080723
  Transmission Date: 20090109
  Serious: Yes (Hospitalization)
  Sender: FDA-Public Use
  Company Number: FR-ROCHE-577460

PATIENT
  Sex: Male

DRUGS (10)
  1. ROCEPHIN [Suspect]
     Indication: PYURIA
     Dosage: STRENGTH: 2G/40ML, FORM: INJECTABLE SOLUTION, DOSAGE: TAKEN DAILY
     Route: 042
     Dates: start: 20080526, end: 20080529
  2. CIPROFLOXACIN HCL [Interacting]
     Indication: PYURIA
     Dosage: TAKEN DAILY
     Route: 042
     Dates: start: 20080526, end: 20080529
  3. LASIX [Interacting]
     Indication: DRUG USE FOR UNKNOWN INDICATION
     Dosage: TAKEN DAILY, FORM: INJECTABLE SOLUTION.
     Route: 042
     Dates: start: 20080524, end: 20080526
  4. PREVISCAN [Concomitant]
  5. CORDARONE [Concomitant]
  6. NOVONORM [Concomitant]
  7. RAMIPRIL [Concomitant]
  8. NEXIUM [Concomitant]
  9. XATRAL [Concomitant]
  10. LEVOTHYROX [Concomitant]

REACTIONS (2)
  - DRUG INTERACTION [None]
  - RENAL FAILURE ACUTE [None]
